FAERS Safety Report 4726959-0 (Version None)
Quarter: 2005Q3

REPORT INFORMATION
  Report Type: 
  Country: None (occurrence: None)
  Receive Date: 20050726
  Receipt Date: 20050726
  Transmission Date: 20060218
  Serious: No
  Sender: FDA-Public Use
  Company Number: None

PATIENT
  Age: 49 Year
  Sex: Female
  Weight: 72.5755 kg

DRUGS (2)
  1. SEA + SKI  SPF30 [Suspect]
  2. BANANA BOAT  SPF30 [Suspect]

REACTIONS (6)
  - APPLICATION SITE DERMATITIS [None]
  - APPLICATION SITE PRURITUS [None]
  - APPLICATION SITE REACTION [None]
  - EYE SWELLING [None]
  - RASH ERYTHEMATOUS [None]
  - RASH MACULO-PAPULAR [None]
